FAERS Safety Report 15615402 (Version 1)
Quarter: 2018Q4

REPORT INFORMATION
  Report Type: Spontaneous
  Country: US (occurrence: US)
  Receive Date: 20181114
  Receipt Date: 20181114
  Transmission Date: 20190205
  Serious: Yes (Other)
  Sender: FDA-Public Use
  Company Number: US-009507513-1811USA004209

PATIENT
  Sex: Female

DRUGS (2)
  1. KEYTRUDA [Suspect]
     Active Substance: PEMBROLIZUMAB
     Indication: ENDOMETRIAL CANCER STAGE IV
     Dosage: UNK
     Route: 042
     Dates: start: 201603
  2. KEYTRUDA [Suspect]
     Active Substance: PEMBROLIZUMAB
     Indication: MICROSATELLITE INSTABILITY CANCER

REACTIONS (6)
  - Haematochezia [Not Recovered/Not Resolved]
  - Anaemia [Not Recovered/Not Resolved]
  - Product dose omission [Unknown]
  - Asthenia [Not Recovered/Not Resolved]
  - Confusional state [Not Recovered/Not Resolved]
  - Fatigue [Not Recovered/Not Resolved]

NARRATIVE: CASE EVENT DATE: 2018
